FAERS Safety Report 7509562-9 (Version None)
Quarter: 2011Q2

REPORT INFORMATION
  Report Type: 
  Country: None (occurrence: None)
  Receive Date: 20110527
  Receipt Date: 20110505
  Transmission Date: 20111010
  Serious: Yes (Other)
  Sender: FDA-Public Use
  Company Number: US-BAYER-201031708NA

PATIENT
  Age: 27 Year
  Sex: Female
  Weight: 92.517 kg

DRUGS (10)
  1. ASPIRIN [Concomitant]
     Indication: HEADACHE
  2. YASMIN [Suspect]
     Indication: CONTRACEPTION
     Dosage: 1 DF, QD
     Route: 048
     Dates: start: 20051201, end: 20080701
  3. METFORMIN HCL [Concomitant]
     Indication: DIABETES MELLITUS
     Dosage: UNK
     Dates: start: 20051201, end: 20101101
  4. MIRALAX [Concomitant]
  5. GLYCOLAX [Concomitant]
  6. DROSPIRENONE AND ETHINYL ESTRADIOL [Suspect]
     Indication: CONTRACEPTION
     Dosage: 1 DF, QD
     Route: 048
     Dates: start: 20080701, end: 20091101
  7. DROSPIRENONE AND ETHINYL ESTRADIOL [Suspect]
     Indication: POLYCYSTIC OVARIES
  8. SPIRONOLACTONE [Concomitant]
     Indication: HORMONE LEVEL ABNORMAL
     Dosage: UNK
     Dates: start: 20050101
  9. YASMIN [Suspect]
     Indication: POLYCYSTIC OVARIES
  10. GLUCOPHAGE [Concomitant]

REACTIONS (1)
  - CHOLELITHIASIS [None]
